FAERS Safety Report 25090161 (Version 1)
Quarter: 2025Q1

REPORT INFORMATION
  Report Type: Spontaneous
  Country: US (occurrence: US)
  Receive Date: 20250318
  Receipt Date: 20250318
  Transmission Date: 20250409
  Serious: No
  Sender: BAUSCH AND LOMB
  Company Number: US-BAUSCHBL-2025BNL004394

PATIENT
  Age: 86 Year
  Sex: Female

DRUGS (3)
  1. VYZULTA [Suspect]
     Active Substance: LATANOPROSTENE BUNOD
     Indication: Glaucoma
     Dosage: ONE DROP INTO BOTH EYES ONCE DAILY
     Route: 047
     Dates: start: 202412
  2. VYZULTA [Suspect]
     Active Substance: LATANOPROSTENE BUNOD
     Route: 047
     Dates: start: 202503
  3. TIMOLOL [Concomitant]
     Active Substance: TIMOLOL
     Indication: Product used for unknown indication
     Route: 065

REACTIONS (4)
  - Hypopnoea [Recovered/Resolved]
  - Choking sensation [Recovered/Resolved]
  - Dyspnoea [Recovered/Resolved]
  - Inappropriate schedule of product administration [Unknown]

NARRATIVE: CASE EVENT DATE: 20241201
